FAERS Safety Report 8278200 (Version 3)
Quarter: 2013Q4

REPORT INFORMATION
  Report Type: Report from Study
  Country: JP (occurrence: JP)
  Receive Date: 20111207
  Receipt Date: 20131230
  Transmission Date: 20140711
  Serious: Yes (Other)
  Sender: FDA-Public Use
  Company Number: PHHY2010JP36521

PATIENT
  Age: 61 Year
  Sex: Male

DRUGS (7)
  1. AMN107 [Suspect]
     Indication: CHRONIC MYELOID LEUKAEMIA
     Dosage: 400 MG, DAILY
     Route: 048
     Dates: start: 20091113, end: 20100120
  2. AMN107 [Suspect]
     Dosage: 600 MG, DAILY
     Route: 048
     Dates: start: 20100121, end: 20100401
  3. AMN107 [Suspect]
     Dosage: 400 MG, DAILY
     Route: 048
     Dates: start: 20100402
  4. WARFARIN POTASSIUM [Concomitant]
     Dosage: 1 MG, UNK
     Route: 048
     Dates: start: 20101111
  5. SUNRYTHM [Concomitant]
     Dosage: 150 MG, UNK
     Route: 048
     Dates: start: 20101111, end: 20101124
  6. CINOBEZILE [Concomitant]
     Dosage: 200 MG, UNK
     Route: 048
     Dates: start: 20101124, end: 20101215
  7. PRONON [Concomitant]
     Dosage: 300 MG, UNK
     Route: 048
     Dates: start: 20101216

REACTIONS (3)
  - Gamma-glutamyltransferase increased [Recovered/Resolved]
  - Lipase increased [Recovered/Resolved]
  - Alopecia [Not Recovered/Not Resolved]
